FAERS Safety Report 26150712 (Version 2)
Quarter: 2025Q4

REPORT INFORMATION
  Report Type: Spontaneous
  Country: TR (occurrence: TR)
  Receive Date: 20251212
  Receipt Date: 20251217
  Transmission Date: 20260118
  Serious: Yes (Death, Disabling, Other)
  Sender: GILEAD
  Company Number: TR-GILEAD-2025-0740298

PATIENT
  Age: 47 Year
  Sex: Female

DRUGS (1)
  1. TRODELVY [Suspect]
     Active Substance: SACITUZUMAB GOVITECAN-HZIY
     Indication: Triple negative breast cancer
     Dosage: 10 MG/KG, DAYS 1 AND 8 EVERY 3 WEEKS
     Route: 065

REACTIONS (7)
  - Lumbar puncture [Fatal]
  - Metastases to central nervous system [Fatal]
  - Neutropenia [Unknown]
  - Disease progression [Unknown]
  - Diarrhoea [Unknown]
  - Vomiting [Unknown]
  - Fatigue [Unknown]

NARRATIVE: CASE EVENT DATE: 20241110
